FAERS Safety Report 17440276 (Version 1)
Quarter: 2020Q1

REPORT INFORMATION
  Report Type: Spontaneous
  Country: US (occurrence: US)
  Receive Date: 20200205
  Receipt Date: 20200205
  Transmission Date: 20200409
  Serious: Yes (Hospitalization)
  Sender: FDA-Public Use
  Company Number: None

PATIENT
  Sex: Male

DRUGS (6)
  1. GLEOSTINE [Suspect]
     Active Substance: LOMUSTINE
  2. GLEOSTINE [Suspect]
     Active Substance: LOMUSTINE
     Indication: BRAIN NEOPLASM MALIGNANT
     Route: 048
     Dates: start: 20191211
  3. GLEOSTINE [Suspect]
     Active Substance: LOMUSTINE
  4. GLEOSTINE [Suspect]
     Active Substance: LOMUSTINE
  5. GLEOSTINE [Suspect]
     Active Substance: LOMUSTINE
  6. GLEOSTINE [Suspect]
     Active Substance: LOMUSTINE

REACTIONS (2)
  - Vomiting [None]
  - Seizure [None]
